FAERS Safety Report 9444358 (Version 11)
Quarter: 2013Q4

REPORT INFORMATION
  Report Type: Spontaneous
  Country: US (occurrence: US)
  Receive Date: 20130807
  Receipt Date: 20131017
  Transmission Date: 20140711
  Serious: Yes (Death, Hospitalization)
  Sender: FDA-Public Use
  Company Number: US-JNJFOC-20130800686

PATIENT
  Age: 85 Year
  Sex: Female
  Weight: 63 kg

DRUGS (7)
  1. XARELTO [Suspect]
     Indication: CEREBROVASCULAR ACCIDENT PROPHYLAXIS
     Dosage: RECEIVED A TOTAL OF 3 DOSES
     Route: 048
  2. XARELTO [Suspect]
     Indication: CEREBROVASCULAR ACCIDENT PROPHYLAXIS
     Dosage: AT 1913 HOURS 1 DOSE STOPPED TILL 11-MAY-2013
     Route: 048
     Dates: start: 20130503
  3. XARELTO [Suspect]
     Indication: CEREBROVASCULAR ACCIDENT PROPHYLAXIS
     Dosage: FIRST DOSE TIMING: 1739 HOURS??LAST DOSE TIMING: 1759 HOURS
     Route: 048
     Dates: start: 20130511, end: 20130513
  4. XARELTO [Suspect]
     Indication: ATRIAL FIBRILLATION
     Dosage: AT 1913 HOURS 1 DOSE STOPPED TILL 11-MAY-2013
     Route: 048
     Dates: start: 20130503
  5. XARELTO [Suspect]
     Indication: ATRIAL FIBRILLATION
     Dosage: FIRST DOSE TIMING: 1739 HOURS??LAST DOSE TIMING: 1759 HOURS
     Route: 048
     Dates: start: 20130511, end: 20130513
  6. XARELTO [Suspect]
     Indication: ATRIAL FIBRILLATION
     Dosage: RECEIVED A TOTAL OF 3 DOSES
     Route: 048
  7. ASPIRIN [Suspect]
     Indication: PRODUCT USED FOR UNKNOWN INDICATION
     Route: 065

REACTIONS (2)
  - Cerebrovascular accident [Not Recovered/Not Resolved]
  - Cerebral haemorrhage [Fatal]
